FAERS Safety Report 7511727-7 (Version None)
Quarter: 2011Q2

REPORT INFORMATION
  Report Type: 
  Country: None (occurrence: None)
  Receive Date: 20110531
  Receipt Date: 20110519
  Transmission Date: 20111010
  Serious: Yes (Hospitalization, Other)
  Sender: FDA-Public Use
  Company Number: CH-JNJFOC-20110511891

PATIENT
  Age: 69 Year
  Sex: Male

DRUGS (12)
  1. ATORVASTATIN [Concomitant]
     Route: 065
  2. SINTROM [Interacting]
     Route: 048
     Dates: start: 20110318
  3. CALCIMAGON-D 3 [Concomitant]
     Route: 065
  4. AMARYL [Concomitant]
     Route: 065
     Dates: end: 20110330
  5. SINTROM [Interacting]
     Indication: ATRIAL FLUTTER
     Route: 048
  6. METOPROLOL SUCCINATE [Concomitant]
     Route: 065
     Dates: end: 20110331
  7. TRAMADOL HYDROCHLORIDE [Suspect]
     Indication: PRODUCT USED FOR UNKNOWN INDICATION
     Route: 048
     Dates: end: 20110303
  8. SINTROM [Interacting]
     Route: 048
     Dates: start: 20110318
  9. SINTROM [Interacting]
     Indication: ATRIAL FIBRILLATION
     Route: 048
  10. ETHANOL [Suspect]
     Indication: PRODUCT USED FOR UNKNOWN INDICATION
     Route: 048
     Dates: end: 20110303
  11. AMLODIPINE [Concomitant]
     Route: 065
  12. NICOTINE [Concomitant]
     Route: 065

REACTIONS (2)
  - INTERNATIONAL NORMALISED RATIO INCREASED [None]
  - DRUG INTERACTION [None]
